FAERS Safety Report 5383557-6 (Version None)
Quarter: 2007Q3

REPORT INFORMATION
  Report Type: 
  Country: None (occurrence: None)
  Receive Date: 20070710
  Receipt Date: 20070706
  Transmission Date: 20080115
  Serious: Yes (Other)
  Sender: FDA-Public Use
  Company Number: US-MERCK-0705USA03186

PATIENT
  Age: 58 Year
  Sex: Female
  Weight: 102 kg

DRUGS (6)
  1. JANUVIA [Suspect]
     Indication: DIABETES MELLITUS
     Route: 048
     Dates: start: 20070305, end: 20070502
  2. FORTAMET [Concomitant]
     Indication: DIABETES MELLITUS
     Route: 048
  3. QUINAPRIL HYDROCHLORIDE [Concomitant]
     Indication: HYPERTENSION
     Route: 048
  4. CRESTOR [Concomitant]
     Indication: HYPERLIPIDAEMIA
     Route: 048
  5. ZOLOFT [Concomitant]
     Indication: DYSTHYMIC DISORDER
     Route: 048
  6. LEVOTHYROXINE SODIUM [Concomitant]
     Indication: HYPOTHYROIDISM
     Route: 048

REACTIONS (2)
  - PRURITUS [None]
  - RASH GENERALISED [None]
